FAERS Safety Report 6162046-5 (Version None)
Quarter: 2009Q2

REPORT INFORMATION
  Report Type: 
  Country: None (occurrence: None)
  Receive Date: 20090417
  Receipt Date: 20090417
  Transmission Date: 20091009
  Serious: No
  Sender: FDA-Public Use
  Company Number: None

PATIENT
  Age: 58 Year
  Sex: Female
  Weight: 101.1521 kg

DRUGS (1)
  1. AVINZA [Suspect]
     Indication: PAIN
     Dosage: 1 CAPSULE ONCE DAILY MOUTH
     Route: 048

REACTIONS (5)
  - INADEQUATE ANALGESIA [None]
  - PAIN [None]
  - PRODUCT QUALITY ISSUE [None]
  - PRODUCT SUBSTITUTION ISSUE [None]
  - TOOTHACHE [None]
